FAERS Safety Report 15743451 (Version 1)
Quarter: 2018Q4

REPORT INFORMATION
  Report Type: Spontaneous
  Country: FR (occurrence: FR)
  Receive Date: 20181220
  Receipt Date: 20181220
  Transmission Date: 20190205
  Serious: Yes (Hospitalization)
  Sender: FDA-Public Use
  Company Number: FR-TEVA-2018-FR-988797

PATIENT
  Age: 63 Year
  Sex: Male
  Weight: 53 kg

DRUGS (30)
  1. POLARAMINE [Suspect]
     Active Substance: DEXCHLORPHENIRAMINE MALEATE
     Indication: ALLERGY PROPHYLAXIS
     Dosage: J1
     Route: 042
     Dates: start: 20180731, end: 20181122
  2. ALPRAZOLAM. [Concomitant]
     Active Substance: ALPRAZOLAM
     Indication: METABOLIC ACIDOSIS
     Dosage: 2000 MILLIGRAM DAILY; 2-2-2-2
     Route: 048
     Dates: start: 20130612
  3. ZELITREX 500 MG, COATED TABLET [Concomitant]
     Indication: HERPES ZOSTER
     Dosage: 1000 MILLIGRAM DAILY; 1-0-1
     Route: 048
     Dates: start: 20180829
  4. BACTRIM [Concomitant]
     Active Substance: SULFAMETHOXAZOLE\TRIMETHOPRIM
     Indication: INFECTION
     Dosage: 800 MILLIGRAM DAILY;
     Route: 048
     Dates: start: 20180907
  5. ATENOLOL ARROW 50 MG, TABLET COATED SCORED [Concomitant]
     Indication: HYPERTENSION
     Dosage: 75 MILLIGRAM DAILY; 1-0-0.5
     Route: 048
     Dates: start: 20130612
  6. XYLOCAINE VISCOUS 2 PERCENT, ORAL GEL [Concomitant]
     Indication: ORAL PAIN
     Dosage: 4 DOSAGE FORMS DAILY; 1-1-1-1
     Route: 048
     Dates: start: 20180821
  7. ALPRAZOLAM. [Suspect]
     Active Substance: ALPRAZOLAM
     Indication: ANXIETY
     Dosage: .5 MILLIGRAM DAILY;
     Route: 048
     Dates: start: 20180530
  8. PHOSPHONEUROS, ORAL SOLUTION IN DROPS [Concomitant]
     Indication: BLOOD PHOSPHORUS DECREASED
     Dosage: 50 GTT DAILY; 25-0-25 (GOUTTES)
     Route: 048
     Dates: start: 20180821
  9. DOLIPRANE [Concomitant]
     Active Substance: ACETAMINOPHEN
     Indication: PAIN
     Dosage: 3 GRAM DAILY; 1-1-1
     Route: 048
     Dates: start: 20180821
  10. TAREG [Suspect]
     Active Substance: VALSARTAN
     Indication: HYPERTENSION
     Dosage: 80 MILLIGRAM DAILY; 0-1-0
     Route: 048
     Dates: start: 20140423, end: 20181107
  11. ERBITUX [Suspect]
     Active Substance: CETUXIMAB
     Indication: SQUAMOUS CELL CARCINOMA OF HEAD AND NECK
     Dosage: 415 MG J1 J8 J15
     Route: 042
     Dates: start: 20180731, end: 20181122
  12. MOVICOL [Concomitant]
     Active Substance: POLYETHYLENE GLYCOL 3350\POTASSIUM CHLORIDE\SODIUM BICARBONATE\SODIUM CHLORIDE
     Indication: CONSTIPATION
     Dosage: 2 DOSAGE FORMS DAILY; 2-0-0 (SACHET)
     Route: 048
     Dates: start: 20180803
  13. LERCANIDIPINE ARROW 10 MG, TABLET COATED SCORED [Suspect]
     Active Substance: LERCANIDIPINE
     Indication: HYPERTENSION
     Dosage: 10 MILLIGRAM DAILY; 1-0-0
     Route: 048
     Dates: start: 20140614
  14. ZOPHREN [Suspect]
     Active Substance: ONDANSETRON
     Indication: ANTIEMETIC SUPPORTIVE CARE
     Dosage: J1
     Route: 042
     Dates: start: 20180731
  15. CORTANCYL 5 MG, TABLET [Suspect]
     Active Substance: PREDNISONE
     Indication: PROPHYLAXIS AGAINST TRANSPLANT REJECTION
     Dosage: 5 MILLIGRAM DAILY;
     Route: 048
     Dates: start: 2009
  16. SKENAN [Suspect]
     Active Substance: MORPHINE SULFATE
     Indication: PAIN
     Dosage: 60 MILLIGRAM DAILY; 1-0-1
     Route: 048
     Dates: start: 20180821
  17. ACTISKENAN 10 MG, CAPSULE [Suspect]
     Active Substance: MORPHINE SULFATE
     Indication: PAIN
     Dosage: 60 MILLIGRAM DAILY; 10 MG SB 6/JOUR
     Route: 048
     Dates: start: 20180821
  18. SOLU-MEDROL [Suspect]
     Active Substance: METHYLPREDNISOLONE SODIUM SUCCINATE
     Indication: ALLERGY PROPHYLAXIS
     Dosage: J1
     Route: 042
     Dates: start: 20180731, end: 20181122
  19. IMOVANE 7.5 MG, TABLET COATED SCORED [Concomitant]
     Indication: INSOMNIA
     Dosage: 7.5 MILLIGRAM DAILY; 0-0-0-1
     Route: 048
     Dates: start: 20181009
  20. UVEDOSE [Concomitant]
     Active Substance: CHOLECALCIFEROL
     Indication: VITAMIN D DEFICIENCY
     Route: 048
     Dates: start: 20130612, end: 20181114
  21. KARDEGIC [Suspect]
     Active Substance: ASPIRIN DL-LYSINE
     Indication: PLATELET AGGREGATION
     Dosage: 75 MILLIGRAM DAILY; 1-0-0
     Route: 048
     Dates: start: 20131009
  22. PROGRAF [Suspect]
     Active Substance: TACROLIMUS\TACROLIMUS ANHYDROUS
     Indication: PROPHYLAXIS AGAINST TRANSPLANT REJECTION
     Dosage: 3 MILLIGRAM DAILY;
     Route: 048
     Dates: start: 2009
  23. AZANTAC [Suspect]
     Active Substance: RANITIDINE HYDROCHLORIDE
     Indication: GASTROOESOPHAGEAL REFLUX DISEASE
     Route: 042
     Dates: start: 20180731, end: 20181122
  24. SULFARLEM [Concomitant]
     Active Substance: ANETHOLTRITHION
     Indication: APTYALISM
     Dosage: 150 MILLIGRAM DAILY; 2-2-2
     Route: 048
     Dates: start: 20180620
  25. PRIMPERAN [Suspect]
     Active Substance: METOCLOPRAMIDE HYDROCHLORIDE
     Indication: ANTIEMETIC SUPPORTIVE CARE
     Dosage: J2, J3, J4
     Route: 048
     Dates: start: 20180801
  26. CARBOPLATINE [Suspect]
     Active Substance: CARBOPLATIN
     Indication: SQUAMOUS CELL CARCINOMA OF HEAD AND NECK
     Dosage: J1
     Route: 042
     Dates: start: 20180731, end: 20181122
  27. FLUOROURACILE [Suspect]
     Active Substance: FLUOROURACIL
     Indication: SQUAMOUS CELL CARCINOMA OF HEAD AND NECK
     Dosage: J1, J2, J2,J4
     Route: 042
     Dates: start: 20180731, end: 20181125
  28. CYMBALTA [Suspect]
     Active Substance: DULOXETINE HYDROCHLORIDE
     Indication: ANXIETY
     Dosage: 30 MILLIGRAM DAILY;
     Route: 048
     Dates: start: 20180821
  29. ESOMEPRAZOLE MYLAN 20 MG, GASTRO-RESISTANT CAPSULE [Suspect]
     Active Substance: ESOMEPRAZOLE
     Indication: GASTROOESOPHAGEAL REFLUX DISEASE
     Dosage: 20 MILLIGRAM DAILY;
     Route: 048
     Dates: start: 20130612, end: 20181107
  30. CELLCEPT [Suspect]
     Active Substance: MYCOPHENOLATE MOFETIL\MYCOPHENOLATE MOFETIL HYDROCHLORIDE
     Indication: PROPHYLAXIS AGAINST TRANSPLANT REJECTION
     Dosage: 1000 MILLIGRAM DAILY; 1-0-1
     Route: 048
     Dates: start: 2009

REACTIONS (2)
  - Small intestinal obstruction [Recovering/Resolving]
  - Abdominal compartment syndrome [Recovering/Resolving]

NARRATIVE: CASE EVENT DATE: 20181108
